FAERS Safety Report 10049818 (Version 1)
Quarter: 2014Q1

REPORT INFORMATION
  Report Type: Spontaneous
  Country: US (occurrence: None)
  Receive Date: 20140328
  Receipt Date: 20140328
  Transmission Date: 20141002
  Serious: Yes (Other)
  Sender: FDA-Public Use
  Company Number: A1066637A

PATIENT
  Age: 77 Year
  Sex: Male

DRUGS (1)
  1. ALGINIC ACID + ALUMINIUM HYDROXIDE + MAGNESIUM CARBONATE [Suspect]
     Indication: GASTROOESOPHAGEAL REFLUX DISEASE
     Route: 048

REACTIONS (1)
  - Impaired gastric emptying [None]
